FAERS Safety Report 4313006-8 (Version None)
Quarter: 2004Q1

REPORT INFORMATION
  Report Type: 
  Country: None (occurrence: None)
  Receive Date: 20040304
  Receipt Date: 20040224
  Transmission Date: 20041129
  Serious: Yes (Hospitalization)
  Sender: FDA-Public Use
  Company Number: S04-USA-00839-01

PATIENT
  Age: 69 Year
  Sex: Female

DRUGS (17)
  1. NAMENDA [Suspect]
     Indication: DEMENTIA
     Dosage: 10 MG BID PO
     Route: 048
     Dates: start: 20040101
  2. MEMANTINE HCL [Suspect]
     Indication: DEMENTIA
     Dosage: 5 MG QD PO
     Route: 048
     Dates: start: 20030801
  3. MEMANTINE HCL [Suspect]
     Indication: DEMENTIA
     Dosage: 10 MG QD PO
     Route: 048
  4. MEMANTINE HCL [Suspect]
     Indication: DEMENTIA
     Dosage: 15 MG QD PO
     Route: 048
  5. MEMANTINE HCL [Suspect]
     Indication: DEMENTIA
     Dosage: 10 MG BID PO
     Route: 048
     Dates: end: 20040101
  6. TOPROL-XL [Suspect]
     Indication: PARKINSON'S DISEASE
     Dates: end: 20040218
  7. COMTAN [Suspect]
     Indication: PARKINSON'S DISEASE
     Dates: start: 20040201, end: 20040219
  8. COMTAN [Suspect]
     Indication: TREMOR
     Dates: start: 20040201, end: 20040219
  9. SINEMET [Concomitant]
  10. LIPITOR [Concomitant]
  11. MIRALAX [Concomitant]
  12. ENDOCET [Concomitant]
  13. ASPIRIN [Concomitant]
  14. ZINC SULFATE [Concomitant]
  15. CALCIUM [Concomitant]
  16. VITAMIN E [Concomitant]
  17. FOLIC ACID [Concomitant]

REACTIONS (12)
  - ASTHENIA [None]
  - CHEST PAIN [None]
  - CONTUSION [None]
  - DIFFICULTY IN WALKING [None]
  - FALL [None]
  - FATIGUE [None]
  - HYPERTENSION [None]
  - MENTAL IMPAIRMENT [None]
  - ORTHOSTATIC HYPOTENSION [None]
  - PALLOR [None]
  - SYNCOPE [None]
  - TREMOR [None]
